FAERS Safety Report 25144323 (Version 3)
Quarter: 2025Q3

REPORT INFORMATION
  Report Type: Spontaneous
  Country: US (occurrence: US)
  Receive Date: 20250401
  Receipt Date: 20250708
  Transmission Date: 20251021
  Serious: No
  Sender: SYNDAX
  Company Number: US-SYNDAX PHARMACEUTICALS, INC.-2025US000305

PATIENT
  Sex: Female
  Weight: 56.19 kg

DRUGS (1)
  1. REVUFORJ [Suspect]
     Active Substance: REVUMENIB CITRATE
     Indication: Acute lymphocytic leukaemia
     Dosage: 270 MILLIGRAM, BID
     Route: 048
     Dates: start: 20250311

REACTIONS (6)
  - Fatigue [Unknown]
  - Myalgia [Unknown]
  - Malaise [Unknown]
  - Product dose omission issue [Unknown]
  - Arthralgia [Unknown]
  - Pain [Unknown]
